FAERS Safety Report 19173103 (Version 1)
Quarter: 2021Q2

REPORT INFORMATION
  Report Type: Spontaneous
  Country: US (occurrence: US)
  Receive Date: 20210423
  Receipt Date: 20210423
  Transmission Date: 20210717
  Serious: Yes (Hospitalization)
  Sender: FDA-Public Use
  Company Number: US-EMCURE PHARMACEUTICALS LTD-2021-EPL-001343

PATIENT
  Age: 25 Year
  Sex: Female

DRUGS (3)
  1. ACETAMINOPHEN. [Suspect]
     Active Substance: ACETAMINOPHEN
     Indication: DENTAL DISCOMFORT
     Dosage: 500 MILLIGRAM
  2. HYDROCODONE BITARTRATE AND ACETAMINOPHEN [Suspect]
     Active Substance: ACETAMINOPHEN\HYDROCODONE BITARTRATE
     Indication: DENTAL DISCOMFORT
     Dosage: 5/300 MG THREE TO FOUR TIMES DAILY
  3. ACETAMINOPHEN. [Suspect]
     Active Substance: ACETAMINOPHEN
     Dosage: 3,000?4,000 MG DAILY

REACTIONS (8)
  - Toxicity to various agents [Unknown]
  - Transaminases increased [Recovered/Resolved]
  - Exposure during pregnancy [Unknown]
  - Drug level below therapeutic [Unknown]
  - Metabolic acidosis [Recovered/Resolved]
  - Aspartate aminotransferase increased [Recovered/Resolved]
  - Pyroglutamic acidosis [Unknown]
  - Alanine aminotransferase increased [Recovered/Resolved]
